FAERS Safety Report 16522521 (Version 2)
Quarter: 2019Q4

REPORT INFORMATION
  Report Type: Spontaneous
  Country: DK (occurrence: DK)
  Receive Date: 20190702
  Receipt Date: 20191003
  Transmission Date: 20200122
  Serious: Yes (Other)
  Sender: FDA-Public Use
  Company Number: DK-MYLANLABS-2019M1061143

PATIENT
  Age: 54 Year
  Sex: Female

DRUGS (13)
  1. QUETIAPINE. [Suspect]
     Active Substance: QUETIAPINE
     Indication: INSOMNIA
     Dosage: 25 MILLIGRAM
     Route: 065
     Dates: end: 20181221
  2. QUETIAPINE. [Suspect]
     Active Substance: QUETIAPINE
     Dosage: 25 MILLIGRAM
     Route: 065
     Dates: start: 201901
  3. AMITRIPTYLINE [Suspect]
     Active Substance: AMITRIPTYLINE
     Dosage: DECREASING THE DOSE AND WAS COMPLETELY WITHDRAWN JUST BEFORE NEW YEAR
     Route: 065
     Dates: start: 20181221
  4. TIZANIDIN TEVA [Suspect]
     Active Substance: TIZANIDINE
     Indication: MUSCLE TIGHTNESS
     Dosage: 4 MILLIGRAM
     Route: 065
  5. AMITRIPTYLINE [Suspect]
     Active Substance: AMITRIPTYLINE
     Dosage: 10 MILLIGRAM
     Route: 065
  6. TIZANIDIN TEVA [Suspect]
     Active Substance: TIZANIDINE
     Dosage: 2 MILLIGRAM, QD
     Route: 048
     Dates: start: 20190406, end: 201904
  7. AMITRIPTYLINE [Suspect]
     Active Substance: AMITRIPTYLINE
     Indication: PRODUCT USED FOR UNKNOWN INDICATION
     Dosage: 25 MILLIGRAM
     Route: 065
     Dates: start: 20180919
  8. MONTELUKAST [Concomitant]
     Active Substance: MONTELUKAST SODIUM
     Indication: ASTHMA
     Dosage: 10 MILLIGRAM DAILY
  9. TIZANIDIN TEVA [Suspect]
     Active Substance: TIZANIDINE
     Indication: HEADACHE
     Dosage: 2 MILLIGRAM, QD
     Route: 065
     Dates: start: 20181221, end: 20190406
  10. TIZANIDIN TEVA [Suspect]
     Active Substance: TIZANIDINE
     Dosage: 6 MILLIGRAM
     Route: 065
  11. VASTAREL [Concomitant]
     Active Substance: TRIMETAZIDINE DIHYDROCHLORIDE
     Indication: MENIERE^S DISEASE
     Dosage: 40 MILLIGRAM DAILY;
  12. STRATTERA [Concomitant]
     Active Substance: ATOMOXETINE HYDROCHLORIDE
     Indication: ATTENTION DEFICIT/HYPERACTIVITY DISORDER
     Dosage: INCREASED TO 100 MG IN DECEMBER 2018; FOR 8 YEARS
     Dates: start: 2018
  13. QUETIAPINE. [Suspect]
     Active Substance: QUETIAPINE
     Dosage: UNK
     Dates: end: 20181221

REACTIONS (10)
  - Sleep disorder [Unknown]
  - Hallucination, visual [Recovering/Resolving]
  - Hallucinations, mixed [Recovering/Resolving]
  - Nausea [Unknown]
  - Depression [Recovering/Resolving]
  - Hallucination [Recovering/Resolving]
  - Anxiety [Recovering/Resolving]
  - Feeling abnormal [Not Recovered/Not Resolved]
  - Suicidal ideation [Recovering/Resolving]
  - Stress [Recovering/Resolving]

NARRATIVE: CASE EVENT DATE: 20181221
